FAERS Safety Report 26025959 (Version 1)
Quarter: 2025Q4

REPORT INFORMATION
  Report Type: Spontaneous
  Country: US (occurrence: US)
  Receive Date: 20251111
  Receipt Date: 20251111
  Transmission Date: 20260117
  Serious: Yes (Hospitalization, Other)
  Sender: SANDOZ
  Company Number: US-SANDOZ-SDZ2025US083828

PATIENT
  Sex: Female

DRUGS (5)
  1. CLINDAMYCIN [Suspect]
     Active Substance: CLINDAMYCIN
     Indication: Dermatitis acneiform
     Dosage: UNK
     Route: 065
     Dates: start: 20210525
  2. CERITINIB [Suspect]
     Active Substance: CERITINIB
     Indication: Metastatic malignant melanoma
     Dosage: 300 MG, QD
     Route: 065
     Dates: start: 20210511
  3. CERITINIB [Suspect]
     Active Substance: CERITINIB
     Dosage: 300 MG, QD
     Route: 065
     Dates: start: 20210511, end: 20210708
  4. TRAMETINIB [Suspect]
     Active Substance: TRAMETINIB
     Indication: Metastatic malignant melanoma
     Dosage: UNK
     Route: 065
     Dates: start: 20210511
  5. TRAMETINIB [Suspect]
     Active Substance: TRAMETINIB
     Dosage: UNK
     Route: 065
     Dates: start: 20210528, end: 20210708

REACTIONS (4)
  - Urinary tract infection [Unknown]
  - Pyelonephritis [Unknown]
  - Metastases to bladder [Unknown]
  - Rash [Recovering/Resolving]

NARRATIVE: CASE EVENT DATE: 20210526
